FAERS Safety Report 5918176-3 (Version None)
Quarter: 2008Q4

REPORT INFORMATION
  Report Type: 
  Country: None (occurrence: None)
  Receive Date: 20081014
  Receipt Date: 20081010
  Transmission Date: 20090506
  Serious: Yes (Hospitalization)
  Sender: FDA-Public Use
  Company Number: DE-ABBOTT-08P-062-0481132-00

PATIENT
  Sex: Male
  Weight: 75 kg

DRUGS (3)
  1. HUMIRA [Suspect]
     Indication: PSORIATIC ARTHROPATHY
     Route: 058
     Dates: start: 20080123
  2. HUMIRA [Suspect]
     Route: 058
  3. METHOTREXATE SODIUM [Suspect]
     Indication: PSORIATIC ARTHROPATHY
     Dates: start: 20080301

REACTIONS (4)
  - ARTERIAL OCCLUSIVE DISEASE [None]
  - ATRIAL FIBRILLATION [None]
  - GENERAL PHYSICAL HEALTH DETERIORATION [None]
  - PAIN IN EXTREMITY [None]
